FAERS Safety Report 24399142 (Version 1)
Quarter: 2024Q4

REPORT INFORMATION
  Report Type: Report from Study
  Country: FR (occurrence: FR)
  Receive Date: 20241004
  Receipt Date: 20241004
  Transmission Date: 20250114
  Serious: Yes (Other)
  Sender: TEVA
  Company Number: FR-ASTELLAS-2019US030030

PATIENT
  Age: 62 Year
  Sex: Male

DRUGS (2)
  1. BENDAMUSTINE [Suspect]
     Active Substance: BENDAMUSTINE
     Indication: Cutaneous T-cell lymphoma
     Dosage: 120 MG/M2, Q3W
     Route: 042
  2. BRENTUXIMAB VEDOTIN [Suspect]
     Active Substance: BRENTUXIMAB VEDOTIN
     Indication: Cutaneous T-cell lymphoma
     Dosage: 1.8 MG/KG, Q3W
     Route: 065

REACTIONS (2)
  - Acute kidney injury [Unknown]
  - Product use in unapproved indication [Unknown]
